FAERS Safety Report 5869691-2 (Version None)
Quarter: 2008Q3

REPORT INFORMATION
  Report Type: 
  Country: None (occurrence: None)
  Receive Date: 20080904
  Receipt Date: 20080828
  Transmission Date: 20090109
  Serious: Yes (Hospitalization)
  Sender: FDA-Public Use
  Company Number: US-BAYER-200832269NA

PATIENT
  Age: 20 Year
  Sex: Female

DRUGS (1)
  1. YASMIN [Suspect]
     Indication: MENSTRUAL DISORDER
     Dosage: TOTAL DAILY DOSE: 1  DF
     Route: 048

REACTIONS (2)
  - BRAIN NEOPLASM [None]
  - MEMORY IMPAIRMENT [None]
